FAERS Safety Report 13516035 (Version 3)
Quarter: 2017Q3

REPORT INFORMATION
  Report Type: Spontaneous
  Country: SE (occurrence: SE)
  Receive Date: 20170505
  Receipt Date: 20170804
  Transmission Date: 20171127
  Serious: Yes (Hospitalization, Other)
  Sender: FDA-Public Use
  Company Number: SE-AMGEN-SWESP2017067458

PATIENT
  Age: 70 Year
  Sex: Female
  Weight: 60 kg

DRUGS (7)
  1. AMILORID [Concomitant]
     Dosage: UNK UNK, QD
  2. DUROFERON [Concomitant]
     Active Substance: FERROUS SULFATE
     Dosage: 1
  3. TRIOBE [Concomitant]
     Dosage: 1
  4. KALCIPOS [Concomitant]
     Active Substance: CALCIUM CARBONATE
     Dosage: 1
  5. LASIX [Concomitant]
     Active Substance: FUROSEMIDE
     Dosage: 1
  6. PROLIA [Suspect]
     Active Substance: DENOSUMAB
     Indication: OSTEOPOROSIS
     Dosage: 60 MG, Q6MO
     Route: 058
     Dates: start: 20140403
  7. ADALAT [Concomitant]
     Active Substance: NIFEDIPINE
     Dosage: 10 MG, BID

REACTIONS (6)
  - Lower limb fracture [Unknown]
  - Ankle fracture [Unknown]
  - Fall [Unknown]
  - Joint dislocation [Unknown]
  - Fibula fracture [Unknown]
  - Tibia fracture [Unknown]

NARRATIVE: CASE EVENT DATE: 20170407
